FAERS Safety Report 5922260-8 (Version None)
Quarter: 2008Q4

REPORT INFORMATION
  Report Type: 
  Country: None (occurrence: None)
  Receive Date: 20081017
  Receipt Date: 20081003
  Transmission Date: 20090506
  Serious: Yes (Other)
  Sender: FDA-Public Use
  Company Number: JP-AVENTIS-200813099JP

PATIENT
  Sex: Female

DRUGS (2)
  1. ARAVA [Suspect]
     Dosage: DOSE: 10 MG
     Route: 048
     Dates: start: 20030101
  2. TRADITIONAL CHINESE MEDICINE (NOS) [Concomitant]

REACTIONS (1)
  - LIVER DISORDER [None]
